FAERS Safety Report 5082906-6 (Version None)
Quarter: 2006Q3

REPORT INFORMATION
  Report Type: 
  Country: None (occurrence: None)
  Receive Date: 20060720
  Receipt Date: 20060426
  Transmission Date: 20061208
  Serious: Yes (Hospitalization, Other)
  Sender: FDA-Public Use
  Company Number: 2006057885

PATIENT
  Age: 65 Year
  Sex: Male
  Weight: 84.8226 kg

DRUGS (2)
  1. CELEBREX [Suspect]
     Indication: ARTHRALGIA
     Dosage: 100 MG (100 MG,1 IN 1 D)
     Dates: start: 19990101, end: 20030901
  2. CELEBREX [Suspect]
     Indication: ARTHRITIS
     Dosage: 100 MG (100 MG,1 IN 1 D)
     Dates: start: 19990101, end: 20030901

REACTIONS (1)
  - MYOCARDIAL INFARCTION [None]
